FAERS Safety Report 9888929 (Version 1)
Quarter: 2014Q1

REPORT INFORMATION
  Report Type: Spontaneous
  Country: US (occurrence: None)
  Receive Date: 20140210
  Receipt Date: 20140210
  Transmission Date: 20141002
  Serious: Yes (Disabling)
  Sender: FDA-Public Use
  Company Number: None

PATIENT
  Age: 48 Year
  Sex: Female
  Weight: 78.47 kg

DRUGS (1)
  1. MEDROL [Suspect]
     Indication: POST PROCEDURAL SWELLING

REACTIONS (2)
  - Osteonecrosis [None]
  - Osteonecrosis [None]
